FAERS Safety Report 6456707-8 (Version None)
Quarter: 2009Q4

REPORT INFORMATION
  Report Type: 
  Country: None (occurrence: None)
  Receive Date: 20091124
  Receipt Date: 20091124
  Transmission Date: 20100525
  Serious: Yes (Hospitalization)
  Sender: FDA-Public Use
  Company Number: None

PATIENT
  Sex: Female
  Weight: 109 kg

DRUGS (3)
  1. PACLITAXEL [Suspect]
     Dosage: 385 MG
     Dates: end: 20070507
  2. CYCLOPHOSPHAMIDE [Suspect]
     Dosage: 5280 MG
     Dates: end: 20070423
  3. DOXORUBICIN HCL [Suspect]
     Dosage: 520 MG
     Dates: end: 20070423

REACTIONS (4)
  - BLOOD AMYLASE INCREASED [None]
  - CONFUSIONAL STATE [None]
  - HYPERGLYCAEMIA [None]
  - LIPASE INCREASED [None]
